FAERS Safety Report 24395174 (Version 1)
Quarter: 2024Q4

REPORT INFORMATION
  Report Type: Report from Study
  Country: US (occurrence: US)
  Receive Date: 20241004
  Receipt Date: 20241004
  Transmission Date: 20250114
  Serious: Yes (Hospitalization, Other)
  Sender: ACADIA PHARMACEUTICALS
  Company Number: US-ACADIA PHARMACEUTICALS INC.-ACA-2024-PIM-005912

PATIENT
  Age: 77 Year
  Sex: Male

DRUGS (18)
  1. NUPLAZID [Suspect]
     Active Substance: PIMAVANSERIN TARTRATE
     Indication: Parkinson^s disease
     Dosage: 34 MILLIGRAM, QD
     Route: 048
     Dates: start: 20240307
  2. XTAMPZA ER [Suspect]
     Active Substance: OXYCODONE
  3. ASPIRIN [Concomitant]
     Active Substance: ASPIRIN
  4. VITAMINS [Concomitant]
     Active Substance: VITAMINS
  5. SENNA [Concomitant]
     Active Substance: SENNA LEAF\SENNOSIDES\SENNOSIDES A AND B
  6. AUGMENTIN [Concomitant]
     Active Substance: AMOXICILLIN\CLAVULANATE POTASSIUM
  7. PRAVASTATIN [Concomitant]
     Active Substance: PRAVASTATIN
  8. GABAPENTIN [Concomitant]
     Active Substance: GABAPENTIN
  9. SERTRALINE [Concomitant]
     Active Substance: SERTRALINE HYDROCHLORIDE
  10. XTAMPZA ER [Concomitant]
     Active Substance: OXYCODONE
  11. FUROSEMIDE [Concomitant]
     Active Substance: FUROSEMIDE
  12. CLONAZEPAM [Concomitant]
     Active Substance: CLONAZEPAM
  13. LISINOPRIL [Concomitant]
     Active Substance: LISINOPRIL
  14. FINASTERIDE [Concomitant]
     Active Substance: FINASTERIDE
  15. QUETIAPINE [Concomitant]
     Active Substance: QUETIAPINE
  16. GLYCOPYRROLATE [Concomitant]
     Active Substance: GLYCOPYRROLATE
  17. OMEPRAZOLE [Concomitant]
     Active Substance: OMEPRAZOLE
  18. TAMSULOSIN [Concomitant]
     Active Substance: TAMSULOSIN

REACTIONS (8)
  - Sepsis [Recovered/Resolved]
  - Urinary tract infection [Recovered/Resolved]
  - Fluid retention [Recovered/Resolved]
  - Prostatomegaly [Recovered/Resolved]
  - Bladder catheterisation [Recovered/Resolved]
  - Blood pressure decreased [Recovered/Resolved]
  - Constipation [Recovered/Resolved]
  - Hallucination [Recovered/Resolved]

NARRATIVE: CASE EVENT DATE: 20240905
